FAERS Safety Report 6717320-8 (Version None)
Quarter: 2010Q2

REPORT INFORMATION
  Report Type: 
  Country: None (occurrence: None)
  Receive Date: 20100510
  Receipt Date: 20100503
  Transmission Date: 20101027
  Serious: Yes (Other)
  Sender: FDA-Public Use
  Company Number: US-ASTRAZENECA-2010SE10983

PATIENT
  Age: 36 Year
  Sex: Male
  Weight: 86.2 kg

DRUGS (2)
  1. SEROQUEL XR [Suspect]
     Route: 048
  2. KLONOPIN [Concomitant]
     Indication: ANXIETY
     Dates: start: 20090101

REACTIONS (3)
  - AMNESIA [None]
  - HYPERSOMNIA [None]
  - LOSS OF CONSCIOUSNESS [None]
